FAERS Safety Report 5958810-5 (Version None)
Quarter: 2008Q4

REPORT INFORMATION
  Report Type: 
  Country: None (occurrence: None)
  Receive Date: 20081117
  Receipt Date: 20081105
  Transmission Date: 20090506
  Serious: Yes (Hospitalization, Other)
  Sender: FDA-Public Use
  Company Number: 2008-04162

PATIENT
  Age: 66 Year
  Sex: Female
  Weight: 68.3 kg

DRUGS (11)
  1. VELCADE [Suspect]
     Indication: NON-HODGKIN'S LYMPHOMA
     Dosage: 1.3 MG/M2, INTRAVENOUS
     Route: 042
     Dates: start: 20080623, end: 20080926
  2. BENDAMUSTINE(BENDAMUSTINE HYDROCHLORIDE) SOLUTION (EXCEPT SYRUP), 25 T [Suspect]
     Indication: NON-HODGKIN'S LYMPHOMA
     Dosage: 90 MG/M2, INTRAVENOUS
     Route: 042
  3. RITUXIMAB(RITUXIMAB) INJECTION, 375MG/M2 [Suspect]
     Indication: NON-HODGKIN'S LYMPHOMA
     Dosage: 375 MG/M2
     Dates: start: 20080623, end: 20080926
  4. OSCAL + D )COLECALCIFEROL, CALCIUM CARBONATE) [Concomitant]
  5. GLUCOSAMINE (GLUCOSAMINE) [Concomitant]
  6. CENTRUM SILVER (TOCOPHERYL ACETATE, CALCIUM, ZINC, MINERALS NOS, VITAM [Suspect]
  7. VITAMIN B12 [Concomitant]
  8. COUMADIN [Concomitant]
  9. CELEBREX [Concomitant]
  10. ZYRTEC [Concomitant]
  11. BENADRYL (SODIUM CITRATE, AMMONIUM CHLORIDE, MENTHOL, DIPHENHYDRAMINE [Concomitant]

REACTIONS (3)
  - PSOAS ABSCESS [None]
  - SPINAL CORD COMPRESSION [None]
  - STAPHYLOCOCCAL ABSCESS [None]
